FAERS Safety Report 26178322 (Version 1)
Quarter: 2025Q4

REPORT INFORMATION
  Report Type: Spontaneous
  Country: CN (occurrence: CN)
  Receive Date: 20251219
  Receipt Date: 20251219
  Transmission Date: 20260117
  Serious: Yes (Hospitalization, Disabling, Other)
  Sender: SANOFI AVENTIS
  Company Number: CN-SA-2025SA376904

PATIENT
  Age: 77 Year
  Sex: Female
  Weight: 41 kg

DRUGS (6)
  1. ELOXATIN [Suspect]
     Active Substance: OXALIPLATIN
     Indication: Gastric cancer
     Dosage: 110 MG, 1X
     Route: 041
     Dates: start: 20251127, end: 20251127
  2. FLUOROURACIL [Suspect]
     Active Substance: FLUOROURACIL
     Indication: Gastric cancer
     Dosage: 0.5 G, 1X
     Route: 042
     Dates: start: 20251127, end: 20251127
  3. FLUOROURACIL [Suspect]
     Active Substance: FLUOROURACIL
     Dosage: 2.5 G, QOD
     Dates: start: 20251127, end: 20251128
  4. SODIUM CHLORIDE [Concomitant]
     Active Substance: SODIUM CHLORIDE
     Indication: Vehicle solution use
     Dosage: 20 ML, 1X
     Route: 042
     Dates: start: 20251127, end: 20251127
  5. SODIUM CHLORIDE [Concomitant]
     Active Substance: SODIUM CHLORIDE
     Dosage: 130 ML, QOD
     Dates: start: 20251127, end: 20251128
  6. DEXTROSE [Concomitant]
     Active Substance: DEXTROSE MONOHYDRATE
     Indication: Vehicle solution use
     Dosage: 250 ML, 1X
     Route: 041
     Dates: start: 20251127, end: 20251127

REACTIONS (5)
  - Femur fracture [Unknown]
  - Arthralgia [Unknown]
  - Cytopenia [Recovered/Resolved]
  - Neutrophil count decreased [Recovered/Resolved]
  - White blood cell count decreased [Recovered/Resolved]

NARRATIVE: CASE EVENT DATE: 20251203
